FAERS Safety Report 5696951-0 (Version None)
Quarter: 2008Q2

REPORT INFORMATION
  Report Type: 
  Country: None (occurrence: None)
  Receive Date: 20080408
  Receipt Date: 20070131
  Transmission Date: 20081010
  Serious: No
  Sender: FDA-Public Use
  Company Number: US-BAYER-US-2007-003417

PATIENT
  Age: 28 Year
  Sex: Female
  Weight: 82 kg

DRUGS (2)
  1. YASMIN [Suspect]
     Indication: MENSTRUATION IRREGULAR
     Route: 048
     Dates: start: 20070104
  2. DOSTINEX [Concomitant]
     Route: 048
     Dates: start: 20061201, end: 20070104

REACTIONS (2)
  - MENSTRUAL DISORDER [None]
  - VAGINAL DISCHARGE [None]
